FAERS Safety Report 10094699 (Version 1)
Quarter: 2014Q2

REPORT INFORMATION
  Report Type: Spontaneous
  Country: US (occurrence: None)
  Receive Date: 20140411
  Receipt Date: 20140411
  Transmission Date: 20141212
  Serious: Yes (Hospitalization)
  Sender: FDA-Public Use
  Company Number: 2013US002651

PATIENT
  Age: 50 Year
  Sex: Male

DRUGS (2)
  1. ICLUSIG [Suspect]
     Indication: CHRONIC MYELOID LEUKAEMIA
     Route: 048
     Dates: start: 20130927, end: 20131002
  2. LAMICTAL (LAMOTRIGINE) [Concomitant]

REACTIONS (2)
  - Pancreatitis [None]
  - Blood pressure increased [None]
